FAERS Safety Report 9553615 (Version 1)
Quarter: 2013Q3

REPORT INFORMATION
  Report Type: Spontaneous
  Country: US (occurrence: None)
  Receive Date: 20130816
  Receipt Date: 20130816
  Transmission Date: 20140515
  Serious: No
  Sender: FDA-Public Use
  Company Number: US-012346

PATIENT
  Age: 64 Year
  Sex: Female
  Weight: 103.87 kg

DRUGS (8)
  1. PICO-SALAX [Suspect]
     Indication: BOWEL PREPARATION
     Route: 048
     Dates: start: 20130711, end: 20130711
  2. CALCIUM [Concomitant]
  3. NATURAL VITAMIN D [Concomitant]
  4. IMITREX /01044801/ [Concomitant]
  5. INDERAL [Concomitant]
  6. ZYRTEC [Concomitant]
  7. PRILOSEC /00661201/ [Concomitant]
  8. ANTIVERT /00072802/ [Concomitant]

REACTIONS (4)
  - Diarrhoea [None]
  - Product reconstitution issue [None]
  - Liquid product physical issue [None]
  - Drug ineffective [None]
